FAERS Safety Report 9075332 (Version 1)
Quarter: 2013Q1

REPORT INFORMATION
  Report Type: Report from Study
  Country: US (occurrence: US)
  Receive Date: 20130129
  Receipt Date: 20130129
  Transmission Date: 20140127
  Serious: No
  Sender: FDA-Public Use
  Company Number: US-ABBOTT-12P-163-0919834-00

PATIENT
  Sex: Male
  Weight: 56.75 kg

DRUGS (3)
  1. HUMIRA 40 MG/0.8 ML PEN [Suspect]
     Indication: PITYRIASIS RUBRA PILARIS
     Dates: start: 2010
  2. UNKNOWN MEDICATION [Concomitant]
     Indication: HYPERTENSION
  3. OXYCODONE [Concomitant]
     Indication: PAIN

REACTIONS (1)
  - Off label use [Not Recovered/Not Resolved]
